FAERS Safety Report 8365075-6 (Version None)
Quarter: 2012Q2

REPORT INFORMATION
  Report Type: 
  Country: None (occurrence: None)
  Receive Date: 20120516
  Receipt Date: 20120507
  Transmission Date: 20120825
  Serious: Yes (Other)
  Sender: FDA-Public Use
  Company Number: US-ASTRAZENECA-2012SE25745

PATIENT
  Age: 18892 Day
  Sex: Female

DRUGS (10)
  1. PAROXETINE [Concomitant]
  2. SEROQUEL [Suspect]
     Route: 048
     Dates: end: 20120310
  3. BENTYL [Concomitant]
  4. LEVOTHYROXINE SODIUM [Concomitant]
  5. LITHIUM CARBONATE [Concomitant]
     Indication: BIPOLAR DISORDER
     Route: 048
  6. WELLBUTRIN [Concomitant]
     Indication: DEPRESSION
     Route: 048
  7. SEROQUEL [Suspect]
     Indication: ANXIETY
     Dosage: 50 MG, THREE TIMES A DAY, AS REQUIRED
     Route: 048
     Dates: end: 20120310
  8. DICYCLOMINE [Concomitant]
  9. DISIPRAMINE [Concomitant]
  10. OMEPRAZOLE [Concomitant]

REACTIONS (2)
  - TARDIVE DYSKINESIA [None]
  - INTENTIONAL DRUG MISUSE [None]
